FAERS Safety Report 6601632-2 (Version None)
Quarter: 2010Q1

REPORT INFORMATION
  Report Type: 
  Country: None (occurrence: None)
  Receive Date: 20100225
  Receipt Date: 20100218
  Transmission Date: 20100710
  Serious: Yes (Other)
  Sender: FDA-Public Use
  Company Number: CA-JNJFOC-20090600595

PATIENT
  Age: 57 Year
  Sex: Male

DRUGS (4)
  1. REMICADE [Suspect]
     Indication: ANKYLOSING SPONDYLITIS
     Dosage: SEVERAL INFUSIONS
     Route: 042
  2. COZAAR [Concomitant]
  3. PARIET [Concomitant]
  4. PRAVACHOL [Concomitant]

REACTIONS (1)
  - MALIGNANT MELANOMA IN SITU [None]
